FAERS Safety Report 9796960 (Version 2)
Quarter: 2014Q1

REPORT INFORMATION
  Report Type: Spontaneous
  Country: US (occurrence: US)
  Receive Date: 20140105
  Receipt Date: 20140117
  Transmission Date: 20141002
  Serious: Yes (Death, Life-Threatening, Hospitalization, Other)
  Sender: FDA-Public Use
  Company Number: US-MERCK-1401USA000343

PATIENT
  Sex: Female
  Weight: 70.3 kg

DRUGS (3)
  1. JANUVIA [Suspect]
     Indication: DIABETES MELLITUS
     Dosage: 100 MG, QD
     Route: 048
     Dates: start: 20070627, end: 20080708
  2. JANUMET [Suspect]
     Indication: DIABETES MELLITUS
     Dosage: 50/500MG QD
     Route: 048
     Dates: start: 20090314, end: 20100208
  3. JANUMET [Suspect]
     Dosage: 50/500MG, QD
     Route: 048
     Dates: start: 20110616, end: 20111122

REACTIONS (9)
  - Pancreatic carcinoma [Unknown]
  - Cerebrovascular accident [Fatal]
  - Coronary artery disease [Unknown]
  - Pancreatic stent placement [Unknown]
  - Nephropathy [Unknown]
  - Renal failure [Unknown]
  - Hypertension [Unknown]
  - Neuropathy peripheral [Unknown]
  - Abdominal pain [Unknown]
